FAERS Safety Report 21656683 (Version 1)
Quarter: 2022Q4

REPORT INFORMATION
  Report Type: Spontaneous
  Country: US (occurrence: US)
  Receive Date: 20221129
  Receipt Date: 20221129
  Transmission Date: 20230113
  Serious: No
  Sender: FDA-Public Use
  Company Number: US-SA-SAC20221125001161

PATIENT
  Sex: Female

DRUGS (1)
  1. DUPIXENT [Suspect]
     Active Substance: DUPILUMAB
     Dosage: UNK (300MG/2ML FREQUENCY: OTHER)
     Route: 058

REACTIONS (3)
  - Injection site pain [Unknown]
  - Symptom recurrence [Unknown]
  - Therapeutic response decreased [Unknown]
